FAERS Safety Report 16686430 (Version 1)
Quarter: 2019Q3

REPORT INFORMATION
  Report Type: Spontaneous
  Country: CN (occurrence: CN)
  Receive Date: 20190809
  Receipt Date: 20190809
  Transmission Date: 20191004
  Serious: Yes (Other)
  Sender: FDA-Public Use
  Company Number: CN-ROCHE-2369019

PATIENT
  Age: 55 Year
  Sex: Female

DRUGS (18)
  1. HERCEPTIN [Suspect]
     Active Substance: TRASTUZUMAB
     Indication: BREAST CANCER METASTATIC
     Route: 065
     Dates: start: 2017
  2. AVASTIN [Suspect]
     Active Substance: BEVACIZUMAB
     Indication: BREAST CANCER METASTATIC
     Route: 041
     Dates: start: 20180414
  3. VINORELBINE BITARTRATE [Concomitant]
     Active Substance: VINORELBINE TARTRATE
     Indication: BREAST CANCER METASTATIC
     Route: 041
     Dates: start: 20180414
  4. XELODA [Suspect]
     Active Substance: CAPECITABINE
     Indication: BREAST CANCER METASTATIC
     Route: 048
     Dates: start: 201610, end: 201709
  5. AVASTIN [Suspect]
     Active Substance: BEVACIZUMAB
     Indication: OFF LABEL USE
  6. CISPLATIN. [Concomitant]
     Active Substance: CISPLATIN
     Indication: BREAST CANCER METASTATIC
     Route: 065
     Dates: start: 201711, end: 20180130
  7. LAPATINIB [Concomitant]
     Active Substance: LAPATINIB
     Indication: BREAST CANCER METASTATIC
     Route: 048
     Dates: start: 201610, end: 201709
  8. HERCEPTIN [Suspect]
     Active Substance: TRASTUZUMAB
     Indication: OFF LABEL USE
  9. PACLITAXEL. [Concomitant]
     Active Substance: PACLITAXEL
     Indication: OFF LABEL USE
  10. XELODA [Suspect]
     Active Substance: CAPECITABINE
     Indication: OFF LABEL USE
  11. LAPATINIB [Concomitant]
     Active Substance: LAPATINIB
     Indication: OFF LABEL USE
  12. PACLITAXEL. [Concomitant]
     Active Substance: PACLITAXEL
     Indication: BREAST CANCER METASTATIC
     Route: 065
     Dates: start: 2017
  13. VINORELBINE BITARTRATE [Concomitant]
     Active Substance: VINORELBINE TARTRATE
     Indication: OFF LABEL USE
  14. GEMCITABINE. [Concomitant]
     Active Substance: GEMCITABINE
     Indication: BREAST CANCER METASTATIC
     Route: 065
     Dates: start: 201711, end: 20180130
  15. GEMCITABINE. [Concomitant]
     Active Substance: GEMCITABINE
     Indication: OFF LABEL USE
  16. CISPLATIN. [Concomitant]
     Active Substance: CISPLATIN
     Indication: OFF LABEL USE
  17. APATINIB [Concomitant]
     Active Substance: APATINIB
     Indication: BREAST CANCER METASTATIC
     Route: 048
     Dates: start: 20180211, end: 20180411
  18. APATINIB [Concomitant]
     Active Substance: APATINIB
     Indication: OFF LABEL USE

REACTIONS (13)
  - Decreased appetite [Unknown]
  - Asthenia [Unknown]
  - Proteinuria [Recovering/Resolving]
  - White blood cell count decreased [Unknown]
  - Off label use [Unknown]
  - Intentional product use issue [Unknown]
  - Vomiting [Unknown]
  - Pulmonary mass [Unknown]
  - Hypertension [Unknown]
  - Nausea [Unknown]
  - Constipation [Unknown]
  - Atelectasis [Unknown]
  - Skin hypertrophy [Unknown]

NARRATIVE: CASE EVENT DATE: 2018
